FAERS Safety Report 7269071-1 (Version None)
Quarter: 2011Q1

REPORT INFORMATION
  Report Type: 
  Country: None (occurrence: None)
  Receive Date: 20110202
  Receipt Date: 20110120
  Transmission Date: 20110831
  Serious: No
  Sender: FDA-Public Use
  Company Number: US-BIOGENIDEC-2010BI039438

PATIENT
  Age: 46 Year
  Sex: Female

DRUGS (4)
  1. TYSABRI [Suspect]
     Indication: MULTIPLE SCLEROSIS
     Route: 042
     Dates: end: 20050101
  2. TYSABRI [Suspect]
     Route: 042
     Dates: start: 20081118
  3. AVONEX [Concomitant]
     Indication: MULTIPLE SCLEROSIS
     Route: 030
     Dates: start: 20031104
  4. AVONEX [Concomitant]
     Route: 030
     Dates: start: 20080101

REACTIONS (2)
  - STRESS [None]
  - MULTIPLE SCLEROSIS RELAPSE [None]
